FAERS Safety Report 23272095 (Version 1)
Quarter: 2023Q4

REPORT INFORMATION
  Report Type: Report from Study
  Country: GB (occurrence: GB)
  Receive Date: 20231207
  Receipt Date: 20231207
  Transmission Date: 20240109
  Serious: Yes (Death, Other)
  Sender: FDA-Public Use
  Company Number: GB-002147023-NVSC2022GB012238

PATIENT
  Sex: Male

DRUGS (2)
  1. HYRIMOZ [Suspect]
     Active Substance: ADALIMUMAB-ADAZ
     Indication: Uveitis
     Dosage: 40 MG (EOW) Q2W (FORTNIGHTLY)
     Route: 058
     Dates: start: 20190806
  2. HYRIMOZ [Suspect]
     Active Substance: ADALIMUMAB-ADAZ
     Indication: Iridocyclitis

REACTIONS (3)
  - Death [Fatal]
  - Visual impairment [Not Recovered/Not Resolved]
  - Product availability issue [Not Recovered/Not Resolved]
